FAERS Safety Report 7485628-7 (Version None)
Quarter: 2011Q2

REPORT INFORMATION
  Report Type: 
  Country: None (occurrence: None)
  Receive Date: 20110517
  Receipt Date: 20110504
  Transmission Date: 20111010
  Serious: Yes (Hospitalization)
  Sender: FDA-Public Use
  Company Number: US-US-EMD SERONO, INC.-7058322

PATIENT
  Age: 13 Year
  Sex: Male

DRUGS (1)
  1. SAIZEN [Suspect]
     Dates: start: 20031201, end: 20070710

REACTIONS (3)
  - EDUCATIONAL PROBLEM [None]
  - SUICIDAL IDEATION [None]
  - AGGRESSION [None]
